FAERS Safety Report 7388132-X (Version None)
Quarter: 2011Q2

REPORT INFORMATION
  Report Type: 
  Country: None (occurrence: None)
  Receive Date: 20110401
  Receipt Date: 20110317
  Transmission Date: 20111010
  Serious: Yes (Other)
  Sender: FDA-Public Use
  Company Number: US-JNJFOC-20110208559

PATIENT
  Sex: Female
  Weight: 46 kg

DRUGS (4)
  1. REMICADE [Suspect]
     Route: 042
  2. REMICADE [Suspect]
     Indication: DERMATOMYOSITIS
     Route: 042
  3. BENADRYL [Concomitant]
     Indication: PREMEDICATION
     Route: 065
  4. ACETAMINOPHEN [Concomitant]
     Indication: PREMEDICATION
     Route: 065

REACTIONS (4)
  - CHEST DISCOMFORT [None]
  - FLUSHING [None]
  - DYSPNOEA [None]
  - INFUSION RELATED REACTION [None]
